FAERS Safety Report 13627485 (Version 1)
Quarter: 2017Q2

REPORT INFORMATION
  Report Type: Report from Study
  Country: US (occurrence: US)
  Receive Date: 20170531
  Receipt Date: 20170531
  Transmission Date: 20170830
  Serious: Yes (Hospitalization)
  Sender: FDA-Public Use
  Company Number: US-ASTELLAS-1505444

PATIENT
  Age: 79 Year
  Sex: Female
  Weight: 68.1 kg

DRUGS (26)
  1. ADVAIR HFA [Concomitant]
     Active Substance: FLUTICASONE PROPIONATE\SALMETEROL XINAFOATE
     Dosage: 250/50 MG
     Route: 055
     Dates: start: 20141117
  2. CIPROFLOXACIN. [Concomitant]
     Active Substance: CIPROFLOXACIN
     Route: 048
     Dates: start: 20141107
  3. METFORMIN [Concomitant]
     Active Substance: METFORMIN HYDROCHLORIDE
  4. FLUTICASONE. [Concomitant]
     Active Substance: FLUTICASONE
  5. LEVOTHYROXINE. [Concomitant]
     Active Substance: LEVOTHYROXINE
  6. CLOPIDOGREL [Concomitant]
     Active Substance: CLOPIDOGREL BISULFATE
  7. LANTUS [Concomitant]
     Active Substance: INSULIN GLARGINE
  8. ALAVERT ALLERGY [Concomitant]
     Active Substance: LORATADINE
  9. TARCEVA [Suspect]
     Active Substance: ERLOTINIB HYDROCHLORIDE
     Indication: NON-SMALL CELL LUNG CANCER
     Route: 048
     Dates: start: 20141126
  10. DOCQLACE [Concomitant]
     Active Substance: DOCUSATE SODIUM
  11. ATORVASTATIN [Concomitant]
     Active Substance: ATORVASTATIN
  12. NITROSTAT [Concomitant]
     Active Substance: NITROGLYCERIN
  13. EXEMESTANE. [Concomitant]
     Active Substance: EXEMESTANE
  14. CLINDAMYCIN. [Concomitant]
     Active Substance: CLINDAMYCIN
  15. VENTOLIN [Concomitant]
     Active Substance: ALBUTEROL SULFATE
  16. VALSARTAN HCTZ [Concomitant]
     Active Substance: HYDROCHLOROTHIAZIDE\VALSARTAN
  17. VOLTAREN [Concomitant]
     Active Substance: DICLOFENAC SODIUM
  18. RANITIDINE. [Concomitant]
     Active Substance: RANITIDINE
  19. TARCEVA [Suspect]
     Active Substance: ERLOTINIB HYDROCHLORIDE
     Route: 048
     Dates: start: 20141124
  20. METOPROLOL TARTRATE. [Concomitant]
     Active Substance: METOPROLOL TARTRATE
  21. MAALOX ADVANCED [Concomitant]
  22. BENZONATATE. [Concomitant]
     Active Substance: BENZONATATE
     Route: 048
     Dates: start: 20141206
  23. HYDROCODONE BITARTRATE AND ACETAMINOPHEN [Concomitant]
     Active Substance: ACETAMINOPHEN\HYDROCODONE BITARTRATE
     Route: 048
     Dates: start: 20141107
  24. NOVOLOG [Concomitant]
     Active Substance: INSULIN ASPART
  25. LEVEMIR [Concomitant]
     Active Substance: INSULIN DETEMIR
  26. CLARITIN [Concomitant]
     Active Substance: LORATADINE

REACTIONS (3)
  - Vomiting [Unknown]
  - Thrombosis [Not Recovered/Not Resolved]
  - Acne [Not Recovered/Not Resolved]

NARRATIVE: CASE EVENT DATE: 201412
